FAERS Safety Report 4979728-0 (Version None)
Quarter: 2006Q2

REPORT INFORMATION
  Report Type: 
  Country: None (occurrence: None)
  Receive Date: 20060421
  Receipt Date: 20060310
  Transmission Date: 20061013
  Serious: Yes (Other)
  Sender: FDA-Public Use
  Company Number: US-AMGEN-KDL172037

PATIENT
  Sex: Male

DRUGS (3)
  1. ENBREL [Suspect]
     Indication: RHEUMATOID ARTHRITIS
     Route: 058
     Dates: start: 20051228
  2. METHOTREXATE [Concomitant]
     Dates: start: 20030101
  3. PLAQUENIL [Concomitant]
     Dates: start: 20030101

REACTIONS (3)
  - DIPLOPIA [None]
  - GUILLAIN-BARRE SYNDROME [None]
  - HEADACHE [None]
